FAERS Safety Report 9693544 (Version 3)
Quarter: 2014Q1

REPORT INFORMATION
  Report Type: Spontaneous
  Country: US (occurrence: US)
  Receive Date: 20131118
  Receipt Date: 20140124
  Transmission Date: 20141002
  Serious: Yes (Other)
  Sender: FDA-Public Use
  Company Number: US-ALLERGAN-1316341US

PATIENT
  Age: 32 Year
  Sex: Female

DRUGS (3)
  1. BOTOX [Suspect]
     Indication: NEUROGENIC BLADDER
     Dosage: 200 UNITS, SINGLE
     Route: 030
     Dates: start: 20130919, end: 20130919
  2. PRENATAL VITAMINS                  /02014401/ [Concomitant]
     Indication: PRODUCT USED FOR UNKNOWN INDICATION
  3. MYRBETRIQ [Concomitant]
     Indication: URINARY INCONTINENCE

REACTIONS (4)
  - Haemorrhage [Recovered/Resolved]
  - Pelvic fluid collection [Recovering/Resolving]
  - Gastrointestinal hypomotility [Recovering/Resolving]
  - Constipation [Recovering/Resolving]
